FAERS Safety Report 14623625 (Version 1)
Quarter: 2018Q1

REPORT INFORMATION
  Report Type: Spontaneous
  Country: US (occurrence: US)
  Receive Date: 20180312
  Receipt Date: 20180312
  Transmission Date: 20180509
  Serious: Yes (Disabling, Other)
  Sender: FDA-Public Use
  Company Number: US-AXELLIA-001450

PATIENT
  Age: 74 Year
  Sex: Female

DRUGS (1)
  1. VANCOMYCIN [Suspect]
     Active Substance: VANCOMYCIN
     Indication: INFECTION PROPHYLAXIS
     Dosage: 0.1 ML OF 1 MG/0.1 ML CONCENTRATION; MIXED IN THE FACILITY

REACTIONS (10)
  - Retinal vasculitis [Recovered/Resolved with Sequelae]
  - Vitreous floaters [Recovered/Resolved]
  - Corneal oedema [Recovered/Resolved]
  - Hypersensitivity [Recovered/Resolved]
  - Metamorphopsia [Recovered/Resolved]
  - Retinal haemorrhage [Recovered/Resolved]
  - Visual impairment [Not Recovered/Not Resolved]
  - Vision blurred [Recovered/Resolved]
  - Retinal ischaemia [Recovered/Resolved]
  - Vitreous adhesions [Recovered/Resolved]
